FAERS Safety Report 20099207 (Version 2)
Quarter: 2022Q1

REPORT INFORMATION
  Report Type: Spontaneous
  Country: US (occurrence: US)
  Receive Date: 20211122
  Receipt Date: 20220114
  Transmission Date: 20220424
  Serious: No
  Sender: FDA-Public Use
  Company Number: US-Covis Pharma GmbH-2021COV23214

PATIENT
  Age: 26 Year
  Sex: Female

DRUGS (3)
  1. MAKENA [Suspect]
     Active Substance: HYDROXYPROGESTERONE CAPROATE
     Indication: Premature delivery
     Route: 058
     Dates: start: 20210707, end: 20210714
  2. VITAMINS [Concomitant]
     Active Substance: VITAMINS
     Indication: Prenatal care
     Route: 048
     Dates: start: 20210527
  3. FERROUS SULFATE [Concomitant]
     Active Substance: FERROUS SULFATE
     Indication: Prenatal care
     Dates: start: 20210527

REACTIONS (8)
  - Pain [Recovered/Resolved]
  - Burning sensation [Recovered/Resolved]
  - Dizziness [Unknown]
  - Injection site pruritus [Unknown]
  - Injection site swelling [Unknown]
  - Injection site pain [Unknown]
  - Injection site rash [Unknown]
  - Product dose omission issue [Unknown]

NARRATIVE: CASE EVENT DATE: 20210101
